FAERS Safety Report 18375956 (Version 3)
Quarter: 2020Q4

REPORT INFORMATION
  Report Type: Spontaneous
  Country: US (occurrence: US)
  Receive Date: 20201013
  Receipt Date: 20201223
  Transmission Date: 20210114
  Serious: No
  Sender: FDA-Public Use
  Company Number: US-ASTRAZENECA-2020SF24667

PATIENT
  Age: 29687 Day
  Sex: Male
  Weight: 111.1 kg

DRUGS (12)
  1. SYMBICORT [Suspect]
     Active Substance: BUDESONIDE\FORMOTEROL FUMARATE DIHYDRATE
     Indication: ASTHMA
     Dosage: 80/4.5 UG, 2 PUFFS TWICE A DAY
     Route: 055
     Dates: start: 20200116, end: 2020
  2. BUDESONIDE AND FORMOTEROL [Suspect]
     Active Substance: BUDESONIDE\FORMOTEROL
     Indication: COUGH
     Dosage: 80/4.5 UG, TWO PUFFS TWICE A DAY
     Route: 055
     Dates: start: 20190918
  3. BUDESONIDE AND FORMOTEROL [Suspect]
     Active Substance: BUDESONIDE\FORMOTEROL
     Indication: COUGH
     Dosage: 80/4.5 UG, TWO PUFFS TWICE A DAY
     Route: 055
     Dates: start: 2020
  4. BUDESONIDE AND FORMOTEROL [Suspect]
     Active Substance: BUDESONIDE\FORMOTEROL
     Indication: CHRONIC OBSTRUCTIVE PULMONARY DISEASE
     Dosage: 80/4.5 UG, TWO PUFFS TWICE A DAY
     Route: 055
     Dates: start: 20190918
  5. SYMBICORT [Suspect]
     Active Substance: BUDESONIDE\FORMOTEROL FUMARATE DIHYDRATE
     Indication: ASTHMA
     Dosage: 160/4.5 UG, 2 PUFFS A DAY
     Route: 055
     Dates: start: 20190918, end: 20200116
  6. SYMBICORT [Suspect]
     Active Substance: BUDESONIDE\FORMOTEROL FUMARATE DIHYDRATE
     Indication: CHRONIC OBSTRUCTIVE PULMONARY DISEASE
     Dosage: 80/4.5 UG, 2 PUFFS TWICE A DAY
     Route: 055
     Dates: start: 20200116, end: 2020
  7. BUDESONIDE AND FORMOTEROL [Suspect]
     Active Substance: BUDESONIDE\FORMOTEROL
     Indication: ASTHMA
     Dosage: 80/4.5 UG, TWO PUFFS TWICE A DAY
     Route: 055
     Dates: start: 2020
  8. SYMBICORT [Suspect]
     Active Substance: BUDESONIDE\FORMOTEROL FUMARATE DIHYDRATE
     Indication: COUGH
     Dosage: 80/4.5 UG, 2 PUFFS TWICE A DAY
     Route: 055
     Dates: start: 20200116, end: 2020
  9. BUDESONIDE AND FORMOTEROL [Suspect]
     Active Substance: BUDESONIDE\FORMOTEROL
     Indication: ASTHMA
     Dosage: 80/4.5 UG, TWO PUFFS TWICE A DAY
     Route: 055
     Dates: start: 20190918
  10. BUDESONIDE AND FORMOTEROL [Suspect]
     Active Substance: BUDESONIDE\FORMOTEROL
     Indication: CHRONIC OBSTRUCTIVE PULMONARY DISEASE
     Dosage: 80/4.5 UG, TWO PUFFS TWICE A DAY
     Route: 055
     Dates: start: 2020
  11. SYMBICORT [Suspect]
     Active Substance: BUDESONIDE\FORMOTEROL FUMARATE DIHYDRATE
     Indication: COUGH
     Dosage: 160/4.5 UG, 2 PUFFS A DAY
     Route: 055
     Dates: start: 20190918, end: 20200116
  12. SYMBICORT [Suspect]
     Active Substance: BUDESONIDE\FORMOTEROL FUMARATE DIHYDRATE
     Indication: CHRONIC OBSTRUCTIVE PULMONARY DISEASE
     Dosage: 160/4.5 UG, 2 PUFFS A DAY
     Route: 055
     Dates: start: 20190918, end: 20200116

REACTIONS (6)
  - Laryngitis [Not Recovered/Not Resolved]
  - Product packaging quantity issue [Recovered/Resolved with Sequelae]
  - Device use error [Unknown]
  - Device difficult to use [Unknown]
  - Circumstance or information capable of leading to medication error [Unknown]
  - Product administration error [Unknown]

NARRATIVE: CASE EVENT DATE: 20200912
